FAERS Safety Report 8901680 (Version 1)
Quarter: 2012Q4

REPORT INFORMATION
  Report Type: Spontaneous
  Country: US (occurrence: None)
  Receive Date: 20121108
  Receipt Date: 20121108
  Transmission Date: 20130627
  Serious: Yes (Hospitalization, Other)
  Sender: FDA-Public Use
  Company Number: None

PATIENT
  Age: 59 Year
  Sex: Female
  Weight: 78.47 kg

DRUGS (1)
  1. FLUTICASONE [Suspect]

REACTIONS (9)
  - Haemoptysis [None]
  - Pneumonia legionella [None]
  - Atypical pneumonia [None]
  - Sinus disorder [None]
  - Haemorrhage [None]
  - Malaise [None]
  - Sinusitis [None]
  - Bronchitis [None]
  - Asthma [None]
